FAERS Safety Report 17988440 (Version 1)
Quarter: 2020Q3

REPORT INFORMATION
  Report Type: Spontaneous
  Country: US (occurrence: US)
  Receive Date: 20200706
  Receipt Date: 20200706
  Transmission Date: 20201103
  Serious: Yes (Hospitalization)
  Sender: FDA-Public Use
  Company Number: None

PATIENT
  Sex: Female

DRUGS (14)
  1. SPIRONOLACT [Concomitant]
     Active Substance: SPIRONOLACTONE
  2. ATROVASTATIN [Concomitant]
     Active Substance: ATORVASTATIN CALCIUM
  3. POT CHLORIDE [Concomitant]
     Active Substance: POTASSIUM CHLORIDE
  4. QUINAPRIL. [Concomitant]
     Active Substance: QUINAPRIL
  5. BUMETANIDE. [Concomitant]
     Active Substance: BUMETANIDE
  6. IPRATROPIUM [Concomitant]
     Active Substance: IPRATROPIUM
  7. VIRTUSSIN [Concomitant]
  8. METOPROLOL TARTRATE. [Concomitant]
     Active Substance: METOPROLOL TARTRATE
  9. PREDNISONE. [Concomitant]
     Active Substance: PREDNISONE
  10. TRELEGY ELLIPTA [Concomitant]
     Active Substance: FLUTICASONE FUROATE\UMECLIDINIUM BROMIDE\VILANTEROL TRIFENATATE
  11. NUCALA [Suspect]
     Active Substance: MEPOLIZUMAB
     Indication: ASTHMA
     Route: 058
     Dates: start: 20200612
  12. DOXYCYCL [Concomitant]
  13. SMZ/TMP [Concomitant]
     Active Substance: SULFAMETHOXAZOLE\TRIMETHOPRIM
  14. XARELTO [Concomitant]
     Active Substance: RIVAROXABAN

REACTIONS (1)
  - Respiratory tract infection fungal [None]
